FAERS Safety Report 10283451 (Version 2)
Quarter: 2014Q3

REPORT INFORMATION
  Report Type: Spontaneous
  Country: JP (occurrence: JP)
  Receive Date: 20140708
  Receipt Date: 20140807
  Transmission Date: 20150326
  Serious: Yes (Death)
  Sender: FDA-Public Use
  Company Number: JP-BAYER-2014-100530

PATIENT
  Age: 73 Year
  Sex: Male
  Weight: 61 kg

DRUGS (8)
  1. BAYASPIRIN [Suspect]
     Active Substance: ASPIRIN
     Indication: ANTIPLATELET THERAPY
     Dosage: DAILY DOSE 100 MG
     Route: 048
     Dates: start: 20131227
  2. VASOLAN [Concomitant]
     Active Substance: VERAPAMIL HYDROCHLORIDE
     Indication: HEART RATE IRREGULAR
     Dosage: DAILY DOSE 120 MG
     Route: 048
     Dates: start: 20131217
  3. DIART [Concomitant]
     Active Substance: AZOSEMIDE
     Indication: POLYURIA
     Dosage: DAILY DOSE 30 MG
     Route: 048
     Dates: start: 20131217, end: 20131222
  4. PLAVIX [Suspect]
     Active Substance: CLOPIDOGREL BISULFATE
     Indication: ANTIPLATELET THERAPY
     Dosage: DAILY DOSE 75 MG
     Route: 048
     Dates: start: 20131227
  5. DIGOSIN [Concomitant]
     Active Substance: DIGOXIN
     Indication: HEART RATE ABNORMAL
     Dosage: DAILY DOSE .125 MG
     Route: 048
     Dates: start: 20131217
  6. XARELTO [Suspect]
     Active Substance: RIVAROXABAN
     Indication: CEREBROVASCULAR ACCIDENT PROPHYLAXIS
  7. ALDACTONE [Concomitant]
     Active Substance: SPIRONOLACTONE
     Indication: POLYURIA
     Dosage: DAILY DOSE 25 MG
     Route: 048
     Dates: start: 20131217, end: 20131222
  8. XARELTO [Suspect]
     Active Substance: RIVAROXABAN
     Indication: ATRIAL FIBRILLATION
     Dosage: 15 MG, QD
     Route: 048
     Dates: start: 20131217, end: 20131228

REACTIONS (5)
  - Decerebrate posture [Fatal]
  - Vomiting [Fatal]
  - Depressed level of consciousness [Fatal]
  - Cerebral haemorrhage [Fatal]
  - Mydriasis [Fatal]

NARRATIVE: CASE EVENT DATE: 20131227
